FAERS Safety Report 5664832-4 (Version None)
Quarter: 2008Q1

REPORT INFORMATION
  Report Type: 
  Country: None (occurrence: None)
  Receive Date: 20080314
  Receipt Date: 20080307
  Transmission Date: 20080703
  Serious: Yes (Death, Life-Threatening, Other)
  Sender: FDA-Public Use
  Company Number: JP-WYE-H00506907

PATIENT
  Sex: Female
  Weight: 46 kg

DRUGS (6)
  1. MYLOTARG [Suspect]
     Indication: ACUTE MYELOID LEUKAEMIA RECURRENT
     Route: 041
     Dates: start: 20070402, end: 20070402
  2. MEILAX [Concomitant]
     Dosage: 2MG/DAY
     Route: 048
     Dates: start: 20070308, end: 20070608
  3. FAMOTIDINE [Concomitant]
     Indication: PROPHYLAXIS
     Dosage: 40 MG/DAY
     Route: 048
     Dates: start: 20070208, end: 20070608
  4. BAKTAR [Concomitant]
     Indication: PROPHYLAXIS
     Dosage: 2 G/DAY
     Route: 048
     Dates: start: 20070327, end: 20070407
  5. CARBENIN [Concomitant]
     Dosage: 2 G/DAY
     Route: 041
     Dates: start: 20070327, end: 20070408
  6. BIKLIN [Concomitant]
     Dosage: 200 MG/DAY
     Route: 041
     Dates: start: 20070328, end: 20070408

REACTIONS (5)
  - ANAEMIA [None]
  - NEUTROPHIL COUNT DECREASED [None]
  - PERFORMANCE STATUS DECREASED [None]
  - PLATELET COUNT DECREASED [None]
  - SUBDURAL HAEMATOMA [None]
